FAERS Safety Report 7009214-8 (Version None)
Quarter: 2010Q3

REPORT INFORMATION
  Report Type: 
  Country: None (occurrence: None)
  Receive Date: 20100921
  Receipt Date: 20100909
  Transmission Date: 20110219
  Serious: Yes (Death, Disabling)
  Sender: FDA-Public Use
  Company Number: 2009AC000513

PATIENT
  Age: 83 Year
  Sex: Male

DRUGS (1)
  1. DIGOXIN [Suspect]
     Indication: PRODUCT USED FOR UNKNOWN INDICATION
     Dosage: 0.250 MG;QD;PO
     Route: 048
     Dates: start: 19970101, end: 20070101

REACTIONS (16)
  - ANXIETY [None]
  - BACTERAEMIA [None]
  - CARDIAC DISORDER [None]
  - CONFUSIONAL STATE [None]
  - ECONOMIC PROBLEM [None]
  - GENERALISED OEDEMA [None]
  - HEART RATE DECREASED [None]
  - METABOLIC ACIDOSIS [None]
  - MULTIPLE INJURIES [None]
  - NAUSEA [None]
  - PAIN [None]
  - PALPITATIONS [None]
  - PNEUMONIA [None]
  - RENAL FAILURE ACUTE [None]
  - URINARY TRACT INFECTION [None]
  - VOMITING [None]
